FAERS Safety Report 11875421 (Version 1)
Quarter: 2015Q4

REPORT INFORMATION
  Report Type: Spontaneous
  Country: US (occurrence: US)
  Receive Date: 20151229
  Receipt Date: 20151229
  Transmission Date: 20160305
  Serious: Yes (Hospitalization)
  Sender: FDA-Public Use
  Company Number: US-TEVA-620928USA

PATIENT
  Age: 22 Year
  Sex: Female

DRUGS (1)
  1. METOCLOPRAMIDE. [Suspect]
     Active Substance: METOCLOPRAMIDE
     Indication: THERMAL BURN
     Route: 065

REACTIONS (1)
  - Chromaturia [Recovered/Resolved]
